FAERS Safety Report 9783007 (Version 6)
Quarter: 2014Q2

REPORT INFORMATION
  Report Type: Spontaneous
  Country: US (occurrence: US)
  Receive Date: 20131226
  Receipt Date: 20140618
  Transmission Date: 20141212
  Serious: Yes (Disabling, Other)
  Sender: FDA-Public Use
  Company Number: US-TEVA-448902USA

PATIENT
  Age: 77 Year
  Sex: Female

DRUGS (5)
  1. AMIODARONE [Suspect]
     Indication: ATRIAL FIBRILLATION
     Dosage: 200 MILLIGRAM DAILY;
     Route: 048
     Dates: start: 20111125, end: 20131030
  2. OMEGA 3 [Concomitant]
     Dates: end: 20131030
  3. XARELTO [Concomitant]
     Dates: end: 20131030
  4. ASPIRIN [Concomitant]
     Dates: end: 20131030
  5. SIMVASTATIN [Concomitant]
     Dates: end: 20131030

REACTIONS (12)
  - Atrial fibrillation [Unknown]
  - Poisoning [Unknown]
  - Dyspnoea [Not Recovered/Not Resolved]
  - Dyspnoea exertional [Not Recovered/Not Resolved]
  - Walking aid user [Not Recovered/Not Resolved]
  - Chest pain [Not Recovered/Not Resolved]
  - Myalgia [Not Recovered/Not Resolved]
  - Atrial flutter [Unknown]
  - Headache [Not Recovered/Not Resolved]
  - Fatigue [Unknown]
  - Emotional distress [Unknown]
  - Chest discomfort [Unknown]
